FAERS Safety Report 7228497-2 (Version None)
Quarter: 2011Q1

REPORT INFORMATION
  Report Type: 
  Country: None (occurrence: None)
  Receive Date: 20110116
  Receipt Date: 20110107
  Transmission Date: 20110831
  Serious: Yes (Hospitalization)
  Sender: FDA-Public Use
  Company Number: PL-AMGEN-POLSP2011002294

PATIENT

DRUGS (5)
  1. KETONAL                            /00321701/ [Concomitant]
     Dosage: EXTEMPORANEOUSLY
     Route: 048
  2. RAMICIN [Concomitant]
     Dosage: 300 MG, BID
     Route: 061
     Dates: start: 20101223
  3. METHOTREXATE [Concomitant]
     Dosage: 15 MG, WEEKLY
     Route: 048
     Dates: start: 20101226
  4. ACIDUM FOLICUM [Concomitant]
     Dosage: UNK
     Route: 048
     Dates: start: 20101226
  5. ENBREL [Suspect]
     Indication: PSORIATIC ARTHROPATHY
     Dosage: 50 MG, QWK
     Route: 058
     Dates: start: 20101209, end: 20101231

REACTIONS (5)
  - DERMATITIS EXFOLIATIVE [None]
  - MUSCULOSKELETAL PAIN [None]
  - PSORIASIS [None]
  - CHILLS [None]
  - BODY TEMPERATURE INCREASED [None]
